FAERS Safety Report 7982240-8 (Version None)
Quarter: 2011Q4

REPORT INFORMATION
  Report Type: 
  Country: None (occurrence: None)
  Receive Date: 20111215
  Receipt Date: 20111215
  Transmission Date: 20120403
  Serious: Yes (Hospitalization)
  Sender: FDA-Public Use
  Company Number: None

PATIENT
  Sex: Female
  Weight: 60.6 kg

DRUGS (1)
  1. ACETAMINOPHEN [Suspect]

REACTIONS (1)
  - ACUTE HEPATIC FAILURE [None]
